APPROVED DRUG PRODUCT: YTTERBIUM YB 169 DTPA
Active Ingredient: PENTETATE CALCIUM TRISODIUM YB-169
Strength: 2mCi/ML
Dosage Form/Route: INJECTABLE;INJECTION
Application: N017518 | Product #001
Applicant: 3M MEDICAL PRODUCTS DIV
Approved: Approved Prior to Jan 1, 1982 | RLD: No | RS: No | Type: DISCN